FAERS Safety Report 6053068-3 (Version None)
Quarter: 2009Q1

REPORT INFORMATION
  Report Type: 
  Country: None (occurrence: None)
  Receive Date: 20090127
  Receipt Date: 20090122
  Transmission Date: 20090719
  Serious: Yes (Other)
  Sender: FDA-Public Use
  Company Number: US-BRISTOL-MYERS SQUIBB COMPANY-14480487

PATIENT
  Age: 28 Year
  Sex: Male

DRUGS (4)
  1. ARIPIPRAZOLE [Suspect]
  2. CLOZAPINE [Suspect]
  3. RISPERIDONE [Suspect]
  4. VALPROATE SODIUM [Suspect]

REACTIONS (3)
  - MYOCARDIAL INFARCTION [None]
  - NEUROLEPTIC MALIGNANT SYNDROME [None]
  - PULMONARY EMBOLISM [None]
